FAERS Safety Report 7576498-7 (Version None)
Quarter: 2011Q2

REPORT INFORMATION
  Report Type: 
  Country: None (occurrence: None)
  Receive Date: 20110628
  Receipt Date: 20090411
  Transmission Date: 20111010
  Serious: Yes (Hospitalization, Other)
  Sender: FDA-Public Use
  Company Number: US-BAYER-200917790NA

PATIENT
  Age: 51 Year
  Sex: Female
  Weight: 59 kg

DRUGS (26)
  1. PLATELETS [Concomitant]
     Dosage: 6 U, UNK
     Route: 042
     Dates: start: 20040122
  2. RESTORIL [Concomitant]
     Dosage: 15-30 MG
     Route: 048
     Dates: start: 20040122
  3. CALCIUM CHLORIDE [Concomitant]
     Dosage: UNK
     Route: 042
     Dates: start: 20040122, end: 20040122
  4. FENTANYL [Concomitant]
     Dosage: 100 MCG
     Route: 042
     Dates: start: 20040122, end: 20040122
  5. VERSED [Concomitant]
     Dosage: 10 MG
     Route: 042
     Dates: start: 20040122, end: 20040122
  6. GLUCOTROL XL [Concomitant]
     Dosage: 5 MG
     Route: 048
     Dates: end: 20040122
  7. SYNTHROID [Concomitant]
     Dosage: 112 MCG
     Route: 048
  8. INSULIN [Concomitant]
     Dosage: 4 UNITS/HR
     Route: 042
     Dates: start: 20040122, end: 20040122
  9. TRASYLOL [Suspect]
     Dosage: 25 ML/HR INFUSION
     Route: 042
     Dates: start: 20040122, end: 20040122
  10. DARVOCET-N 50 [Concomitant]
     Dosage: 1 TAB
     Route: 048
     Dates: start: 20040122
  11. METFORMIN HCL [Concomitant]
     Dosage: 500-1000 MG
     Route: 048
     Dates: end: 20040122
  12. AMIODARONE HCL [Concomitant]
     Dosage: 150 MG BOLUS
     Route: 042
     Dates: start: 20040122, end: 20040122
  13. ESMOLOL [Concomitant]
     Dosage: UNK
     Route: 042
     Dates: start: 20040122, end: 20040122
  14. LEVOPHED [Concomitant]
     Dosage: 25 ML/HR
     Route: 042
     Dates: start: 20040122
  15. ACETYLSALICYLIC ACID SRT [Concomitant]
     Dosage: 81 MG, QD
     Route: 048
     Dates: end: 20040122
  16. ISOSORBIDE [Concomitant]
     Dosage: 60 MG
     Route: 048
     Dates: end: 20040122
  17. ATENOLOL [Concomitant]
     Dosage: 25-50 MG
     Route: 048
  18. ZOCOR [Concomitant]
     Dosage: 80 MG
     Route: 048
  19. MAGNESIUM SULFATE [Concomitant]
     Dosage: 2 GM
     Route: 042
     Dates: start: 20040122, end: 20040122
  20. GLIPIZIDE [Concomitant]
     Dosage: 5-12 MG
     Route: 048
     Dates: end: 20040122
  21. TRASYLOL [Suspect]
     Indication: AORTIC VALVE REPLACEMENT
     Dosage: 1 ML INITIAL TEST DOSE
     Route: 042
     Dates: start: 20040122, end: 20040122
  22. TRASYLOL [Suspect]
     Indication: CORONARY ARTERY BYPASS
     Dosage: 300 ML LOADING DOSE
     Route: 042
     Dates: start: 20040122, end: 20040122
  23. RED BLOOD CELLS [Concomitant]
     Dosage: 2 U, UNK
     Route: 042
     Dates: start: 20040122
  24. ENALAPRIL MALEATE [Concomitant]
     Dosage: 5 MG
     Route: 048
     Dates: start: 20000101, end: 20040122
  25. HEPARIN [Concomitant]
     Dosage: 20,000 UNITS
     Route: 042
     Dates: start: 20040122, end: 20040122
  26. SODIUM BICARBONATE [Concomitant]
     Dosage: 2 AMPS
     Route: 042
     Dates: start: 20040122, end: 20040122

REACTIONS (5)
  - PARALYSIS [None]
  - PAIN [None]
  - UNEVALUABLE EVENT [None]
  - RENAL FAILURE [None]
  - INJURY [None]
